FAERS Safety Report 19859254 (Version 1)
Quarter: 2021Q3

REPORT INFORMATION
  Report Type: Spontaneous
  Country: CA (occurrence: CA)
  Receive Date: 20210921
  Receipt Date: 20210921
  Transmission Date: 20211014
  Serious: Yes (Hospitalization, Other)
  Sender: FDA-Public Use
  Company Number: CA-B.I. PHARMACEUTICALS,INC./RIDGEFIELD-2021-BI-127093

PATIENT
  Age: 70 Year
  Sex: Male

DRUGS (1)
  1. PRADAXA [Suspect]
     Active Substance: DABIGATRAN ETEXILATE MESYLATE
     Indication: ATRIAL FIBRILLATION

REACTIONS (5)
  - Pelvic abscess [Recovered/Resolved]
  - Haematuria [Recovered/Resolved]
  - Post procedural urine leak [Recovered/Resolved]
  - Atrial fibrillation [Recovered/Resolved]
  - Pelvic haematoma [Unknown]
